FAERS Safety Report 9858121 (Version 3)
Quarter: 2014Q2

REPORT INFORMATION
  Report Type: Report from Study
  Country: US (occurrence: US)
  Receive Date: 20140131
  Receipt Date: 20140428
  Transmission Date: 20141212
  Serious: Yes (Hospitalization)
  Sender: FDA-Public Use
  Company Number: US-JNJFOC-20140117988

PATIENT
  Age: 15 Year
  Sex: Female
  Weight: 47.7 kg

DRUGS (7)
  1. REMICADE [Suspect]
     Indication: INFLAMMATORY BOWEL DISEASE
     Route: 042
     Dates: start: 20120227
  2. 5-ASA [Concomitant]
     Route: 065
  3. METHOTREXATE [Concomitant]
     Route: 065
  4. CALCIUM [Concomitant]
     Route: 065
  5. CLARITIN [Concomitant]
     Route: 065
  6. FOLIC ACID [Concomitant]
     Route: 065
  7. MULTIVITAMINS [Concomitant]
     Route: 065

REACTIONS (1)
  - Epstein-Barr virus infection [Recovered/Resolved with Sequelae]
